FAERS Safety Report 14684528 (Version 4)
Quarter: 2018Q2

REPORT INFORMATION
  Report Type: Spontaneous
  Country: ES (occurrence: ES)
  Receive Date: 20180327
  Receipt Date: 20180504
  Transmission Date: 20180711
  Serious: Yes (Other)
  Sender: FDA-Public Use
  Company Number: ES-JNJFOC-20180325896

PATIENT
  Age: 54 Year
  Sex: Female
  Weight: 111 kg

DRUGS (6)
  1. VOKANAMET [Suspect]
     Active Substance: CANAGLIFLOZIN\METFORMIN HYDROCHLORIDE
     Indication: TYPE 2 DIABETES MELLITUS
     Dosage: DOSE: 50/1000MG; 60 FILM-COATED TABLETS
     Route: 048
     Dates: start: 20170714, end: 20180413
  2. EXFORGE HCT [Concomitant]
     Active Substance: AMLODIPINE BESYLATE\HYDROCHLOROTHIAZIDE\VALSARTAN
     Indication: SECONDARY HYPERTENSION
     Route: 048
     Dates: start: 20140820
  3. SIMVASTATIN. [Concomitant]
     Active Substance: SIMVASTATIN
     Indication: LIPID METABOLISM DISORDER
     Dosage: DOSE: 25/30 MG
     Route: 048
     Dates: start: 20160519
  4. ZYTRAM [Concomitant]
     Active Substance: TRAMADOL HYDROCHLORIDE
     Indication: OESOPHAGITIS
     Route: 048
     Dates: start: 20170228
  5. OMEPRAZOLE. [Concomitant]
     Active Substance: OMEPRAZOLE
     Indication: OESOPHAGITIS
     Route: 048
     Dates: start: 20150513
  6. INCRESYNC [Concomitant]
     Active Substance: ALOGLIPTIN BENZOATE\PIOGLITAZONE HYDROCHLORIDE
     Indication: TYPE 2 DIABETES MELLITUS
     Dosage: DOSE: 25/30 MG
     Route: 048
     Dates: start: 20170714

REACTIONS (3)
  - Escherichia urinary tract infection [Recovering/Resolving]
  - Escherichia infection [Recovering/Resolving]
  - Vulvovaginal mycotic infection [Recovering/Resolving]

NARRATIVE: CASE EVENT DATE: 20180129
